FAERS Safety Report 4933393-7 (Version None)
Quarter: 2006Q1

REPORT INFORMATION
  Report Type: 
  Country: None (occurrence: None)
  Receive Date: 20060301
  Receipt Date: 20060215
  Transmission Date: 20060701
  Serious: Yes (Death)
  Sender: FDA-Public Use
  Company Number: 8015078

PATIENT
  Age: 5 Month
  Sex: Male

DRUGS (6)
  1. DEXTROMETHORPHAN HYDROBROMIDE [Suspect]
  2. EPHEDRINE SUL CAP [Suspect]
  3. PSEUDOEPHEDRINE HCL [Suspect]
  4. ACETAMINOPHEN [Suspect]
  5. CARBINOXAMINE MALEATE [Suspect]
  6. METOCLOPRAMIDE [Suspect]

REACTIONS (5)
  - DRUG SCREEN POSITIVE [None]
  - DRUG TOXICITY [None]
  - LOSS OF CONSCIOUSNESS [None]
  - OTORRHOEA [None]
  - PULMONARY CONGESTION [None]
